FAERS Safety Report 21201253 (Version 2)
Quarter: 2022Q3

REPORT INFORMATION
  Report Type: Spontaneous
  Country: US (occurrence: US)
  Receive Date: 20220811
  Receipt Date: 20220929
  Transmission Date: 20221027
  Serious: No
  Sender: FDA-Public Use
  Company Number: US-PFIZER INC-PV202200032777

PATIENT
  Age: 6 Year
  Sex: Male

DRUGS (1)
  1. GENOTROPIN [Suspect]
     Active Substance: SOMATROPIN
     Dosage: 0.8 MG
     Dates: start: 2020

REACTIONS (4)
  - Incorrect dose administered by device [Unknown]
  - Drug dose omission by device [Unknown]
  - Device information output issue [Unknown]
  - Poor quality device used [Unknown]
